FAERS Safety Report 6069382-1 (Version None)
Quarter: 2009Q1

REPORT INFORMATION
  Report Type: 
  Country: None (occurrence: None)
  Receive Date: 20090206
  Receipt Date: 20090127
  Transmission Date: 20090719
  Serious: Yes (Hospitalization)
  Sender: FDA-Public Use
  Company Number: CZ-ELI_LILLY_AND_COMPANY-CZ200901005172

PATIENT
  Age: 54 Year
  Sex: Female

DRUGS (3)
  1. ZYPREXA [Suspect]
     Indication: DELUSIONAL DISORDER, UNSPECIFIED TYPE
     Dosage: 20 MG, UNK
     Route: 065
  2. CITALOPRAM HYDROBROMIDE [Concomitant]
     Dosage: 40 MG, UNKNOWN
     Route: 065
  3. OXAZEPAM [Concomitant]
     Dosage: 15 MG, UNKNOWN
     Route: 065

REACTIONS (2)
  - DEEP VEIN THROMBOSIS [None]
  - WEIGHT INCREASED [None]
